FAERS Safety Report 6130326-5 (Version None)
Quarter: 2009Q1

REPORT INFORMATION
  Report Type: 
  Country: None (occurrence: None)
  Receive Date: 20090324
  Receipt Date: 20090313
  Transmission Date: 20090719
  Serious: Yes (Other)
  Sender: FDA-Public Use
  Company Number: FR-GILEAD-2009-0020791

PATIENT
  Sex: Female

DRUGS (4)
  1. TRUVADA [Suspect]
     Indication: PROPHYLAXIS AGAINST HIV INFECTION
     Dates: start: 20080901
  2. TRUVADA [Suspect]
     Route: 048
     Dates: start: 20070628, end: 20070706
  3. KALETRA [Suspect]
     Indication: PROPHYLAXIS AGAINST HIV INFECTION
     Dates: start: 20080901
  4. KALETRA [Suspect]
     Route: 048
     Dates: start: 20070628, end: 20070706

REACTIONS (1)
  - RHABDOMYOLYSIS [None]
